FAERS Safety Report 13941931 (Version 4)
Quarter: 2017Q3

REPORT INFORMATION
  Report Type: Spontaneous
  Country: US (occurrence: US)
  Receive Date: 20170906
  Receipt Date: 20170919
  Transmission Date: 20171127
  Serious: Yes (Hospitalization, Other)
  Sender: FDA-Public Use
  Company Number: US-PFIZER INC-2017383360

PATIENT
  Age: 52 Year
  Sex: Female
  Weight: 45.36 kg

DRUGS (6)
  1. ALPRAZOLAM. [Suspect]
     Active Substance: ALPRAZOLAM
     Indication: PANIC ATTACK
  2. VISTARIL [Concomitant]
     Active Substance: HYDROXYZINE PAMOATE
     Indication: PRURITUS
  3. ALPRAZOLAM. [Suspect]
     Active Substance: ALPRAZOLAM
     Indication: ANXIETY DISORDER
  4. ALPRAZOLAM. [Suspect]
     Active Substance: ALPRAZOLAM
     Indication: AGORAPHOBIA
     Dosage: 2 MG, 4X/DAY
  5. VISTARIL [Concomitant]
     Active Substance: HYDROXYZINE PAMOATE
     Indication: ANXIETY
     Dosage: 1 TO 2 CAPSULES, 3X/DAY
     Route: 048
  6. ALPRAZOLAM. [Suspect]
     Active Substance: ALPRAZOLAM
     Indication: ANXIETY
     Dosage: 2 MG, 4X/DAY

REACTIONS (6)
  - Weight decreased [Unknown]
  - Withdrawal syndrome [Unknown]
  - Seizure [Unknown]
  - Drug ineffective [Unknown]
  - Suspected counterfeit product [Unknown]
  - Hydrophobia [Unknown]
